FAERS Safety Report 18846256 (Version 1)
Quarter: 2021Q1

REPORT INFORMATION
  Report Type: Spontaneous
  Country: US (occurrence: US)
  Receive Date: 20210204
  Receipt Date: 20210204
  Transmission Date: 20210419
  Serious: Yes (Other)
  Sender: FDA-Public Use
  Company Number: US-ABBVIE-12P-163-0896001-00

PATIENT
  Sex: Male
  Weight: 68.1 kg

DRUGS (14)
  1. SYNTHROID [Suspect]
     Active Substance: LEVOTHYROXINE SODIUM
     Route: 048
     Dates: start: 201202, end: 201202
  2. SELENIUM [Concomitant]
     Active Substance: SELENIUM
     Indication: SUPPLEMENTATION THERAPY
  3. SYNTHROID [Suspect]
     Active Substance: LEVOTHYROXINE SODIUM
     Route: 048
     Dates: start: 201111, end: 20120106
  4. SYNTHROID [Suspect]
     Active Substance: LEVOTHYROXINE SODIUM
     Route: 048
     Dates: start: 201202, end: 201202
  5. SYNTHROID [Suspect]
     Active Substance: LEVOTHYROXINE SODIUM
     Route: 048
     Dates: start: 201205, end: 201206
  6. SEA KELP [ASCOPHYLLUM NODOSUM] [Suspect]
     Active Substance: ASCOPHYLLUM NODOSUM
     Indication: PRODUCT USED FOR UNKNOWN INDICATION
     Route: 065
  7. SYNTHROID [Suspect]
     Active Substance: LEVOTHYROXINE SODIUM
     Indication: BLOOD THYROID STIMULATING HORMONE DECREASED
     Dosage: 50 MCG
     Route: 048
     Dates: start: 201109, end: 201111
  8. SYNTHROID [Suspect]
     Active Substance: LEVOTHYROXINE SODIUM
     Route: 048
     Dates: start: 20120107, end: 20120107
  9. SYNTHROID [Suspect]
     Active Substance: LEVOTHYROXINE SODIUM
     Route: 048
     Dates: start: 201203, end: 201203
  10. SYNTHROID [Suspect]
     Active Substance: LEVOTHYROXINE SODIUM
     Route: 048
     Dates: start: 201204, end: 201204
  11. SYNTHROID [Suspect]
     Active Substance: LEVOTHYROXINE SODIUM
     Route: 048
     Dates: start: 2012, end: 2015
  12. SYNTHROID [Suspect]
     Active Substance: LEVOTHYROXINE SODIUM
     Route: 048
     Dates: start: 201203, end: 201204
  13. SYNTHROID [Suspect]
     Active Substance: LEVOTHYROXINE SODIUM
     Route: 048
     Dates: start: 201204, end: 201205
  14. SYNTHROID [Suspect]
     Active Substance: LEVOTHYROXINE SODIUM
     Route: 048
     Dates: start: 20120108, end: 201201

REACTIONS (14)
  - Muscle tightness [Not Recovered/Not Resolved]
  - Muscular weakness [Not Recovered/Not Resolved]
  - Headache [Recovered/Resolved]
  - Asthenia [Not Recovered/Not Resolved]
  - Hypothyroidism [Not Recovered/Not Resolved]
  - Drug ineffective [Not Recovered/Not Resolved]
  - Depressed level of consciousness [Not Recovered/Not Resolved]
  - Constipation [Not Recovered/Not Resolved]
  - Fatigue [Not Recovered/Not Resolved]
  - Unevaluable event [Not Recovered/Not Resolved]
  - Feeling jittery [Recovered/Resolved]
  - Somnolence [Not Recovered/Not Resolved]
  - Joint range of motion decreased [Not Recovered/Not Resolved]
  - Abdominal discomfort [Not Recovered/Not Resolved]

NARRATIVE: CASE EVENT DATE: 2012
